FAERS Safety Report 9858605 (Version 1)
Quarter: 2014Q1

REPORT INFORMATION
  Report Type: Spontaneous
  Country: US (occurrence: US)
  Receive Date: 20140131
  Receipt Date: 20140131
  Transmission Date: 20141002
  Serious: No
  Sender: FDA-Public Use
  Company Number: US-B.I. PHARMACEUTICALS,INC./RIDGEFIELD-2014-BI-02998PF

PATIENT
  Sex: Female

DRUGS (9)
  1. SPIRIVA [Suspect]
  2. SYMBICORT [Concomitant]
  3. LYRICA [Concomitant]
  4. SIMVASTATIN [Concomitant]
  5. PROAIR HFA [Concomitant]
  6. PROZAC [Concomitant]
  7. XANAX [Concomitant]
  8. ARICEPT [Concomitant]
  9. PRISTIQ [Concomitant]

REACTIONS (1)
  - Drug hypersensitivity [Unknown]
